FAERS Safety Report 7008149-4 (Version None)
Quarter: 2010Q3

REPORT INFORMATION
  Report Type: 
  Country: None (occurrence: None)
  Receive Date: 20100920
  Receipt Date: 20100910
  Transmission Date: 20110219
  Serious: Yes (Life-Threatening, Hospitalization, Other)
  Sender: FDA-Public Use
  Company Number: C1-217-2010

PATIENT
  Age: 32 Year
  Sex: Male

DRUGS (1)
  1. KETOROLAC UNK [Suspect]
     Indication: ANALGESIC THERAPY
     Dosage: 4 MG 6/HLY SUBLINGUAL
     Route: 060

REACTIONS (4)
  - CHEST DISCOMFORT [None]
  - HAEMOPTYSIS [None]
  - MALAISE [None]
  - PULMONARY HAEMORRHAGE [None]
